FAERS Safety Report 6110846-X (Version None)
Quarter: 2009Q1

REPORT INFORMATION
  Report Type: 
  Country: None (occurrence: None)
  Receive Date: 20090309
  Receipt Date: 20090302
  Transmission Date: 20090719
  Serious: Yes (Death)
  Sender: FDA-Public Use
  Company Number: KV200900262

PATIENT
  Age: 69 Year
  Sex: Male

DRUGS (2)
  1. MORPHINE SULFATE [Suspect]
     Indication: PAIN
     Dosage: 15 MG, Q4H PRN PAIN, ORAL
     Route: 048
     Dates: start: 20081204, end: 20081219
  2. MULTIPLE MEDICATIONS INCLUDING OTHER PAIN MEDICATIONS [Concomitant]

REACTIONS (4)
  - ABDOMINAL DISCOMFORT [None]
  - DRUG INTOLERANCE [None]
  - NON-SMALL CELL LUNG CANCER [None]
  - PRODUCT QUALITY ISSUE [None]
